FAERS Safety Report 8622125-7 (Version None)
Quarter: 2012Q3

REPORT INFORMATION
  Report Type: 
  Country: None (occurrence: None)
  Receive Date: 20120826
  Receipt Date: 20081127
  Transmission Date: 20120928
  Serious: Yes (Death, Other)
  Sender: FDA-Public Use
  Company Number: PHHY2008JM044076

PATIENT
  Sex: Male

DRUGS (1)
  1. IMATINIB MESYLATE [Suspect]
     Dates: start: 20041027

REACTIONS (3)
  - NEOPLASM MALIGNANT [None]
  - MYELOFIBROSIS [None]
  - NEOPLASM PROGRESSION [None]
